FAERS Safety Report 24095869 (Version 1)
Quarter: 2024Q3

REPORT INFORMATION
  Report Type: Spontaneous
  Country: CN (occurrence: CN)
  Receive Date: 20240716
  Receipt Date: 20240716
  Transmission Date: 20241017
  Serious: Yes (Hospitalization)
  Sender: PFIZER
  Company Number: CN-PFIZER INC-PV202400091487

PATIENT
  Age: 84 Year
  Sex: Male

DRUGS (3)
  1. ZYVOX [Suspect]
     Active Substance: LINEZOLID
     Indication: Pneumonia
     Dosage: 0.6 G, 2X/DAY
     Route: 041
     Dates: start: 20201109, end: 20201118
  2. GLYCERIN\LECITHIN\MEDIUM-CHAIN TRIGLYCERIDES\SOYBEAN OIL [Suspect]
     Active Substance: GLYCERIN\LECITHIN\MEDIUM-CHAIN TRIGLYCERIDES\SOYBEAN OIL
     Indication: Therapeutic procedure
     Dosage: 250 ML, 1X/DAY
     Route: 041
     Dates: start: 20201106, end: 20210107
  3. AMINO ACIDS, SOURCE UNSPECIFIED [Concomitant]
     Active Substance: AMINO ACIDS, SOURCE UNSPECIFIED
     Indication: Parenteral nutrition
     Dosage: 250 ML, 1X/DAY
     Route: 041
     Dates: start: 20201106, end: 20210115

REACTIONS (3)
  - Platelet count decreased [Recovered/Resolved]
  - Coagulopathy [Not Recovered/Not Resolved]
  - Blood bilirubin increased [Not Recovered/Not Resolved]

NARRATIVE: CASE EVENT DATE: 20201110
